FAERS Safety Report 19974767 (Version 3)
Quarter: 2021Q4

REPORT INFORMATION
  Report Type: Spontaneous
  Country: CN (occurrence: CN)
  Receive Date: 20211020
  Receipt Date: 20211103
  Transmission Date: 20220303
  Serious: Yes (Death, Life-Threatening, Hospitalization, Other)
  Sender: FDA-Public Use
  Company Number: CN-MLMSERVICE-20211005-3147713-1

PATIENT
  Age: 68 Year
  Sex: Female
  Weight: 60 kg

DRUGS (3)
  1. METHYLPREDNISOLONE SODIUM SUCCINATE [Suspect]
     Active Substance: METHYLPREDNISOLONE SODIUM SUCCINATE
     Indication: Myasthenia gravis
     Dosage: 40 MG, 1X/DAY
     Route: 042
  2. PREDNISONE [Suspect]
     Active Substance: PREDNISONE
     Indication: Myasthenia gravis
     Dosage: 1 MG/KG, 1X/DAY
     Route: 048
  3. AZATHIOPRINE [Suspect]
     Active Substance: AZATHIOPRINE
     Indication: Myasthenia gravis
     Dosage: 100 MG, 1X/DAY
     Dates: start: 201601, end: 20180203

REACTIONS (10)
  - Cytomegalovirus infection [Fatal]
  - Acute respiratory distress syndrome [Fatal]
  - Pneumonia cytomegaloviral [Fatal]
  - Pleural effusion [Not Recovered/Not Resolved]
  - Respiratory failure [Not Recovered/Not Resolved]
  - Condition aggravated [Not Recovered/Not Resolved]
  - Nephrotic syndrome [Recovered/Resolved]
  - Acute kidney injury [Recovering/Resolving]
  - Mouth ulceration [Recovering/Resolving]
  - Renal tubular necrosis [Recovering/Resolving]

NARRATIVE: CASE EVENT DATE: 20180123
